FAERS Safety Report 23601062 (Version 2)
Quarter: 2024Q1

REPORT INFORMATION
  Report Type: Spontaneous
  Country: FR (occurrence: None)
  Receive Date: 20240306
  Receipt Date: 20240322
  Transmission Date: 20240410
  Serious: No
  Sender: FDA-Public Use
  Company Number: 2024A051255

PATIENT
  Sex: Male

DRUGS (1)
  1. ANIFROLUMAB [Suspect]
     Active Substance: ANIFROLUMAB
     Dosage: 2 INJECTIONS 3 WEEKS APART300.0MG UNKNOWN
     Route: 042

REACTIONS (2)
  - Feeding disorder [Unknown]
  - Off label use [Unknown]
